FAERS Safety Report 13820237 (Version 1)
Quarter: 2017Q3

REPORT INFORMATION
  Report Type: Spontaneous
  Country: MX (occurrence: MX)
  Receive Date: 20170801
  Receipt Date: 20170801
  Transmission Date: 20171127
  Serious: Yes (Other)
  Sender: FDA-Public Use
  Company Number: MX-LANNETT COMPANY, INC.-MX-2017LAN000946

PATIENT
  Age: 11 Year
  Sex: Male

DRUGS (1)
  1. HALOPERIDOL LACTATE. [Suspect]
     Active Substance: HALOPERIDOL LACTATE
     Indication: ATTENTION DEFICIT/HYPERACTIVITY DISORDER
     Dosage: UNK
     Route: 065

REACTIONS (16)
  - Hyperreflexia [Recovering/Resolving]
  - Chest pain [Recovering/Resolving]
  - Lip disorder [Recovering/Resolving]
  - Unresponsive to stimuli [Recovering/Resolving]
  - Bradyphrenia [Recovering/Resolving]
  - Facial asymmetry [Recovering/Resolving]
  - Toxicity to various agents [Recovering/Resolving]
  - Trismus [Recovering/Resolving]
  - Arrhythmia [Recovering/Resolving]
  - Gait disturbance [Recovering/Resolving]
  - Resting tremor [Recovering/Resolving]
  - Muscle contracture [Recovering/Resolving]
  - Hypertonia [Recovering/Resolving]
  - Dysarthria [Recovering/Resolving]
  - Akathisia [Recovering/Resolving]
  - Opisthotonus [Recovering/Resolving]
